FAERS Safety Report 4343426-7 (Version None)
Quarter: 2004Q2

REPORT INFORMATION
  Report Type: 
  Country: None (occurrence: None)
  Receive Date: 20040419
  Receipt Date: 20040408
  Transmission Date: 20050107
  Serious: Yes (Hospitalization)
  Sender: FDA-Public Use
  Company Number: STA-AE-04-MTX-151

PATIENT
  Sex: Male

DRUGS (2)
  1. METHOTREXATE [Suspect]
     Dosage: 10 MG
     Dates: start: 20020301
  2. BLINDED THERAPY FOR ETANERCEPT (ETANERCEPT, INJECTION) [Suspect]
     Indication: WEGENER'S GRANULOMATOSIS

REACTIONS (6)
  - ECCHYMOSIS [None]
  - FEBRILE NEUTROPENIA [None]
  - LOBAR PNEUMONIA [None]
  - OEDEMA PERIPHERAL [None]
  - PANCYTOPENIA [None]
  - SKIN LACERATION [None]
